FAERS Safety Report 5414936-6 (Version None)
Quarter: 2007Q3

REPORT INFORMATION
  Report Type: 
  Country: None (occurrence: None)
  Receive Date: 20070813
  Receipt Date: 20070813
  Transmission Date: 20080115
  Serious: Yes (Life-Threatening)
  Sender: FDA-Public Use
  Company Number: None

PATIENT
  Age: 68 Year
  Sex: Female
  Weight: 90.2658 kg

DRUGS (2)
  1. LOVENOX [Suspect]
     Indication: THROMBOSIS PROPHYLAXIS
     Dosage: 30 MG EVERY 12 HRS SUBQ
     Route: 058
     Dates: start: 20070620, end: 20070622
  2. LOVENOX [Suspect]
     Indication: PULMONARY EMBOLISM
     Dosage: 90MG EVERY 12 HRS SUBQ
     Route: 058
     Dates: start: 20070622, end: 20070626

REACTIONS (2)
  - PULMONARY EMBOLISM [None]
  - RETROPERITONEAL HAEMORRHAGE [None]
